FAERS Safety Report 9640910 (Version 1)
Quarter: 2013Q4

REPORT INFORMATION
  Report Type: Spontaneous
  Country: KR (occurrence: None)
  Receive Date: 20131021
  Receipt Date: 20131021
  Transmission Date: 20140711
  Serious: Yes (Hospitalization)
  Sender: FDA-Public Use
  Company Number: KR-ALKEM-000196

PATIENT
  Age: 82 Year
  Sex: Female

DRUGS (9)
  1. METFORMIN [Suspect]
     Indication: TYPE 2 DIABETES MELLITUS
     Dosage: 2000 MG- 1.0 DAYS
  2. CIMETIDINE [Suspect]
     Indication: FRACTURE
  3. DEXIBUPROFEN (DEXIBUPROFEN) [Concomitant]
  4. THIOCTACID (THIOCTACID) [Concomitant]
  5. LORAZEPAM (LORAZEPAM) [Concomitant]
  6. FENOFIBRATE (FENOFIBRATE) [Concomitant]
  7. VOGLIBOSE (VOGLIBOSE) [Concomitant]
  8. GLICLAZIDE (GLICLAZIDE) [Concomitant]
  9. ATORVASTATIN (ATORVASTATIN) [Concomitant]

REACTIONS (6)
  - Lactic acidosis [None]
  - Pancreatitis acute [None]
  - Renal failure acute [None]
  - Sepsis [None]
  - Pneumonia aspiration [None]
  - Altered state of consciousness [None]
